FAERS Safety Report 21348054 (Version 1)
Quarter: 2022Q3

REPORT INFORMATION
  Report Type: Report from Study
  Country: US (occurrence: US)
  Receive Date: 20220919
  Receipt Date: 20220919
  Transmission Date: 20221026
  Serious: Yes (Other)
  Sender: FDA-Public Use
  Company Number: US-BRISTOL-MYERS SQUIBB COMPANY-2022-105715

PATIENT
  Age: 37 Year
  Sex: Female
  Weight: 65.77 kg

DRUGS (1)
  1. ZEPOSIA [Suspect]
     Active Substance: OZANIMOD HYDROCHLORIDE
     Indication: Colitis ulcerative
     Route: 048
     Dates: start: 20220831

REACTIONS (4)
  - Haemorrhage [Unknown]
  - Defaecation urgency [Unknown]
  - Asthenia [Unknown]
  - Feeling abnormal [Unknown]
